FAERS Safety Report 4708253-7 (Version None)
Quarter: 2005Q3

REPORT INFORMATION
  Report Type: 
  Country: None (occurrence: None)
  Receive Date: 20050705
  Receipt Date: 20050705
  Transmission Date: 20060218
  Serious: Yes (Other)
  Sender: FDA-Public Use
  Company Number: None

PATIENT
  Sex: Female
  Weight: 73.1 kg

DRUGS (4)
  1. BUSULFAN [Suspect]
     Indication: ACUTE MYELOID LEUKAEMIA
     Dosage: SEE IMAGE
     Route: 048
     Dates: start: 20041104
  2. BUSULFAN [Suspect]
     Dosage: SEE IMAGE
     Route: 042
  3. ETOPOSIDE [Suspect]
     Dosage: SEE IMAGE
  4. G-CSF [Suspect]
     Dosage: SEE IMAGE

REACTIONS (2)
  - CENTRAL LINE INFECTION [None]
  - STAPHYLOCOCCAL INFECTION [None]
